FAERS Safety Report 20264461 (Version 1)
Quarter: 2021Q4

REPORT INFORMATION
  Report Type: Spontaneous
  Country: US (occurrence: US)
  Receive Date: 20211231
  Receipt Date: 20211231
  Transmission Date: 20220303
  Serious: No
  Sender: FDA-Public Use
  Company Number: US-drreddys-SPO/USA/21/0145434

PATIENT
  Age: 49 Year
  Sex: Male
  Weight: 85.5 kg

DRUGS (1)
  1. HABITROL [Suspect]
     Active Substance: NICOTINE
     Indication: Tobacco user
     Route: 062
     Dates: start: 20211220, end: 20211227

REACTIONS (4)
  - Application site irritation [Unknown]
  - Application site pain [Not Recovered/Not Resolved]
  - Underdose [Unknown]
  - Product adhesion issue [Unknown]
